FAERS Safety Report 9587452 (Version 2)
Quarter: 2013Q4

REPORT INFORMATION
  Report Type: Report from Study
  Country: JP (occurrence: JP)
  Receive Date: 20131003
  Receipt Date: 20131003
  Transmission Date: 20140711
  Serious: Yes (Hospitalization, Other)
  Sender: FDA-Public Use
  Company Number: PHHO2009JP01370

PATIENT
  Sex: Male
  Weight: 61 kg

DRUGS (3)
  1. LEPONEX / CLOZARIL [Suspect]
     Indication: SCHIZOPHRENIA
     Dosage: 100 MG, UNK
     Route: 048
     Dates: start: 20061129, end: 20090122
  2. ALOSENN [Concomitant]
     Indication: CONSTIPATION
     Dosage: UNK
  3. LIMAS [Concomitant]
     Indication: MOOD SWINGS
     Dosage: UNK
     Dates: start: 20080927, end: 20090122

REACTIONS (8)
  - Lymphadenopathy [Not Recovered/Not Resolved]
  - Neutropenia [Recovered/Resolved]
  - Nasopharyngitis [Not Recovered/Not Resolved]
  - Pyrexia [Recovered/Resolved]
  - Productive cough [Not Recovered/Not Resolved]
  - Pharyngeal erythema [Not Recovered/Not Resolved]
  - Neutrophil count decreased [Recovered/Resolved]
  - White blood cell count decreased [Recovered/Resolved]
